FAERS Safety Report 6720534-4 (Version None)
Quarter: 2010Q2

REPORT INFORMATION
  Report Type: 
  Country: None (occurrence: None)
  Receive Date: 20100511
  Receipt Date: 20100511
  Transmission Date: 20101027
  Serious: Yes (Hospitalization)
  Sender: FDA-Public Use
  Company Number: None

PATIENT
  Age: 58 Year
  Sex: Male
  Weight: 108.9 kg

DRUGS (1)
  1. PEGINTERFERON [Suspect]
     Indication: HEPATITIS C
     Dosage: 180 MG QWEEK SQ
     Route: 058
     Dates: start: 20090805, end: 20091205

REACTIONS (4)
  - DRY SKIN [None]
  - ERYTHEMA MULTIFORME [None]
  - SKIN EXFOLIATION [None]
  - SUPERINFECTION [None]
